FAERS Safety Report 5318869-5 (Version None)
Quarter: 2007Q1

REPORT INFORMATION
  Report Type: 
  Country: None (occurrence: None)
  Receive Date: 20070201
  Receipt Date: 20061220
  Transmission Date: 20070707
  Serious: No
  Sender: FDA-Public Use
  Company Number: VNL_0351_2006

PATIENT
  Age: 54 Year
  Sex: Male
  Weight: 85.2762 kg

DRUGS (6)
  1. APOKYN [Suspect]
     Indication: PARKINSON'S DISEASE
     Dosage: 4 MG 4 TIMES A DAY SC
     Route: 058
     Dates: start: 20061213, end: 20061217
  2. PERMAX [Concomitant]
  3. SINEMET [Concomitant]
  4. PREVACID [Concomitant]
  5. DIOVAN [Concomitant]
  6. LEXAPRO [Concomitant]

REACTIONS (1)
  - INJECTION SITE BRUISING [None]
